FAERS Safety Report 5401482-9 (Version None)
Quarter: 2007Q3

REPORT INFORMATION
  Report Type: 
  Country: None (occurrence: None)
  Receive Date: 20070731
  Receipt Date: 20060810
  Transmission Date: 20080115
  Serious: No
  Sender: FDA-Public Use
  Company Number: A0614197A

PATIENT
  Age: 46 Year
  Sex: Female

DRUGS (3)
  1. DYAZIDE [Suspect]
     Indication: HYPERTENSION
     Dosage: 1CAP PER DAY
     Route: 048
     Dates: start: 20050101
  2. TRIAMTERENE AND HYDROCHLOROTHIAZIDE [Suspect]
     Indication: HYPERTENSION
  3. NO CONCURRENT MEDICATION [Concomitant]

REACTIONS (6)
  - CONDITION AGGRAVATED [None]
  - IMPAIRED HEALING [None]
  - MUSCLE SPASMS [None]
  - PHARMACEUTICAL PRODUCT COMPLAINT [None]
  - SWELLING [None]
  - URTICARIA [None]
